FAERS Safety Report 5374061-X (Version None)
Quarter: 2007Q2

REPORT INFORMATION
  Report Type: 
  Country: None (occurrence: None)
  Receive Date: 20070627
  Receipt Date: 20070618
  Transmission Date: 20071010
  Serious: Yes (Hospitalization)
  Sender: FDA-Public Use
  Company Number: 2007SP012248

PATIENT
  Age: 53 Year
  Sex: Male

DRUGS (2)
  1. PEG-INTRON [Suspect]
     Indication: HEPATITIS C
     Dates: start: 20070219, end: 20070521
  2. RIBAVIRIN [Suspect]
     Indication: HEPATITIS C
     Dosage: PO
     Route: 048
     Dates: start: 20070219, end: 20070521

REACTIONS (8)
  - COORDINATION ABNORMAL [None]
  - GASTROENTERITIS VIRAL [None]
  - GOUT [None]
  - HAEMORRHAGE [None]
  - MUSCULOSKELETAL CHEST PAIN [None]
  - OESOPHAGEAL RUPTURE [None]
  - PALPITATIONS [None]
  - PHARYNGOLARYNGEAL PAIN [None]
